FAERS Safety Report 15452831 (Version 2)
Quarter: 2018Q4

REPORT INFORMATION
  Report Type: Spontaneous
  Country: US (occurrence: US)
  Receive Date: 20181001
  Receipt Date: 20181022
  Transmission Date: 20190204
  Serious: Yes (Other)
  Sender: FDA-Public Use
  Company Number: US-JNJFOC-20180926128

PATIENT
  Sex: Female
  Weight: 115.21 kg

DRUGS (4)
  1. OLOPATADINE. [Concomitant]
     Active Substance: OLOPATADINE
     Route: 065
  2. LEVAQUIN [Suspect]
     Active Substance: LEVOFLOXACIN
     Indication: SINUSITIS
     Route: 048
     Dates: start: 20170802, end: 20170830
  3. DULERA [Concomitant]
     Active Substance: FORMOTEROL FUMARATE DIHYDRATE\MOMETASONE FUROATE
     Indication: ASTHMA
     Route: 065
     Dates: start: 2014
  4. XYZAL [Concomitant]
     Active Substance: LEVOCETIRIZINE DIHYDROCHLORIDE
     Indication: HYPERSENSITIVITY
     Route: 065
     Dates: start: 2015

REACTIONS (5)
  - Fall [Unknown]
  - Ligament rupture [Recovered/Resolved]
  - Myalgia [Recovered/Resolved]
  - Immobile [Not Recovered/Not Resolved]
  - Periarthritis [Recovered/Resolved]

NARRATIVE: CASE EVENT DATE: 2017
